FAERS Safety Report 9432473 (Version 3)
Quarter: 2013Q4

REPORT INFORMATION
  Report Type: Report from Study
  Country: US (occurrence: US)
  Receive Date: 20130731
  Receipt Date: 20131218
  Transmission Date: 20140711
  Serious: Yes (Death, Other)
  Sender: FDA-Public Use
  Company Number: US-MERCK-1307USA013960

PATIENT
  Sex: 0

DRUGS (4)
  1. REBETOL [Suspect]
     Indication: CHRONIC HEPATITIS C
     Dosage: DOSING RANGING FROM 800 MG DAILY TO 200 MG THRICE WEEKLY
     Route: 048
  2. PEGASYS [Suspect]
     Indication: CHRONIC HEPATITIS C
     Dosage: 135 MICROGRAM, QW
     Route: 058
  3. TELAPREVIR [Suspect]
     Indication: CHRONIC HEPATITIS C
     Dosage: 750 MG, EVERY 7-9 HOURS
     Route: 048
  4. CYCLOSPORINE [Concomitant]

REACTIONS (1)
  - Sepsis [Fatal]
